FAERS Safety Report 7274916-5 (Version None)
Quarter: 2011Q1

REPORT INFORMATION
  Report Type: 
  Country: None (occurrence: None)
  Receive Date: 20110202
  Receipt Date: 20110202
  Transmission Date: 20110831
  Serious: Yes (Other)
  Sender: FDA-Public Use
  Company Number: None

PATIENT
  Sex: Female
  Weight: 54.4316 kg

DRUGS (1)
  1. CARBIDOPA/LEVODOPA 25-100 MG. CARACO/AETNA [Suspect]
     Indication: PARKINSON'S DISEASE
     Dosage: 1 TABLET 2 X DAY OTHER
     Route: 050
     Dates: start: 20110201, end: 20110201

REACTIONS (5)
  - PRODUCT SOLUBILITY ABNORMAL [None]
  - ANXIETY [None]
  - POISONING [None]
  - PRODUCT TASTE ABNORMAL [None]
  - PRODUCT SUBSTITUTION ISSUE [None]
